FAERS Safety Report 11637202 (Version 4)
Quarter: 2016Q1

REPORT INFORMATION
  Report Type: Report from Study
  Country: FR (occurrence: FR)
  Receive Date: 20151016
  Receipt Date: 20160212
  Transmission Date: 20160525
  Serious: Yes (Hospitalization)
  Sender: FDA-Public Use
  Company Number: FR-ABBVIE-15P-056-1479324-00

PATIENT
  Age: 47 Year
  Sex: Female

DRUGS (3)
  1. HUMIRA [Suspect]
     Active Substance: ADALIMUMAB
     Dosage: WEEK 2
     Route: 058
  2. HUMIRA [Suspect]
     Active Substance: ADALIMUMAB
     Indication: CROHN^S DISEASE
     Dosage: BASELINE
     Route: 058
     Dates: start: 20070131, end: 20070131
  3. HUMIRA [Suspect]
     Active Substance: ADALIMUMAB
     Route: 058
     Dates: end: 2010

REACTIONS (10)
  - Intestinal obstruction [Unknown]
  - Intestinal obstruction [Unknown]
  - Intestinal obstruction [Unknown]
  - Intestinal obstruction [Unknown]
  - Diarrhoea [Unknown]
  - Intestinal obstruction [Unknown]
  - Pyrexia [Unknown]
  - Rectal haemorrhage [Unknown]
  - Intestinal obstruction [Unknown]
  - Intestinal obstruction [Unknown]

NARRATIVE: CASE EVENT DATE: 20110208
